FAERS Safety Report 19466570 (Version 1)
Quarter: 2021Q2

REPORT INFORMATION
  Report Type: Spontaneous
  Country: FR (occurrence: FR)
  Receive Date: 20210628
  Receipt Date: 20210628
  Transmission Date: 20210717
  Serious: Yes (Hospitalization)
  Sender: FDA-Public Use
  Company Number: FR-ROCHE-2857571

PATIENT
  Age: 46 Year
  Sex: Male
  Weight: 107 kg

DRUGS (14)
  1. NOOTROPYL [Suspect]
     Active Substance: PIRACETAM
     Indication: MYOCLONUS
     Dosage: 40ML 3/J
     Route: 048
  2. LEVOTHYROX [Concomitant]
     Active Substance: LEVOTHYROXINE
  3. RIVOTRIL [Suspect]
     Active Substance: CLONAZEPAM
     Indication: EPILEPSY
     Dosage: 3CP ? 4CP ? 4CP
     Route: 048
     Dates: start: 2018
  4. FYCOMPA [Suspect]
     Active Substance: PERAMPANEL
     Indication: MYOCLONUS
     Route: 048
     Dates: start: 202002
  5. AMLODIPINE [Concomitant]
     Active Substance: AMLODIPINE BESYLATE
  6. X PREP [SENNOSIDE A+B] [Concomitant]
     Active Substance: SENNOSIDES A AND B
  7. IMOVANE [Suspect]
     Active Substance: ZOPICLONE
     Indication: INSOMNIA
     Route: 048
     Dates: start: 2019
  8. KARDEGIC [Concomitant]
     Active Substance: ASPIRIN DL-LYSINE
  9. DEPAKINE CHRONO [Suspect]
     Active Substance: VALPROATE SODIUM
     Indication: EPILEPSY
     Dosage: 3 ? 0 ? 3
     Route: 048
     Dates: start: 201807
  10. TRANQUITAL [Concomitant]
     Active Substance: HERBALS
  11. PRAZEPAM [Suspect]
     Active Substance: PRAZEPAM
     Indication: ANXIETY
     Route: 048
  12. LEVOTONINE [Suspect]
     Active Substance: OXITRIPTAN
     Indication: POST-ANOXIC MYOCLONUS
     Dosage: 4 ? 4 ? 4
     Route: 048
  13. DUPHALAC [Concomitant]
     Active Substance: LACTULOSE
  14. KEPPRA [Suspect]
     Active Substance: LEVETIRACETAM
     Indication: EPILEPSY
     Dosage: 3 ? 0 ? 3
     Route: 065
     Dates: start: 2018

REACTIONS (2)
  - Behaviour disorder [Not Recovered/Not Resolved]
  - Suicidal ideation [Not Recovered/Not Resolved]

NARRATIVE: CASE EVENT DATE: 20210506
